FAERS Safety Report 7539724-6 (Version None)
Quarter: 2011Q2

REPORT INFORMATION
  Report Type: 
  Country: None (occurrence: None)
  Receive Date: 20110610
  Receipt Date: 20110603
  Transmission Date: 20111010
  Serious: Yes (Hospitalization, Other)
  Sender: FDA-Public Use
  Company Number: JP-CEPHALON-2011002044

PATIENT
  Sex: Female
  Weight: 52 kg

DRUGS (12)
  1. HYDROCORTISONE BUTYRATE [Concomitant]
     Dates: start: 20110119
  2. REBAMIPIDE [Concomitant]
  3. BROTIZOLAM [Concomitant]
  4. SODIUM PICOSULFATE [Concomitant]
  5. BENDAMUSTINE HCL [Suspect]
     Indication: B-CELL LYMPHOMA
     Route: 042
     Dates: start: 20110118, end: 20110303
  6. VALACYCLOVIR HCL [Concomitant]
  7. SULFAMETHOXAZOLE AND TRIMETHOPRIM [Concomitant]
  8. GRANISETRON HCL [Concomitant]
     Dates: start: 20110118
  9. HEPARIN [Concomitant]
  10. DEXAMETHASONE [Concomitant]
  11. OMEPRAZOLE [Concomitant]
  12. MAGNESIUM OXIDE [Concomitant]
     Dates: start: 20110119

REACTIONS (7)
  - PLATELET COUNT DECREASED [None]
  - ANAEMIA [None]
  - RHINITIS ALLERGIC [None]
  - NEUTROPHIL COUNT DECREASED [None]
  - GLOSSITIS [None]
  - LYMPHOCYTE COUNT DECREASED [None]
  - NEUTROPENIA [None]
